FAERS Safety Report 13623986 (Version 1)
Quarter: 2017Q2

REPORT INFORMATION
  Report Type: Spontaneous
  Country: US (occurrence: US)
  Receive Date: 20170608
  Receipt Date: 20170608
  Transmission Date: 20170830
  Serious: No
  Sender: FDA-Public Use
  Company Number: US-ASTRAZENECA-2017SE59601

PATIENT
  Sex: Female
  Weight: 82.6 kg

DRUGS (12)
  1. HYDROCHLOROTHIAZIDE. [Concomitant]
     Active Substance: HYDROCHLOROTHIAZIDE
     Indication: BLOOD PRESSURE ABNORMAL
     Route: 048
  2. PANTOPRAZOLE [Concomitant]
     Active Substance: PANTOPRAZOLE
     Indication: ANTACID THERAPY
     Route: 048
  3. ROPINIROLE. [Concomitant]
     Active Substance: ROPINIROLE
     Indication: PARKINSON^S DISEASE
     Route: 048
  4. ATENOLOL. [Suspect]
     Active Substance: ATENOLOL
     Indication: CARDIAC DISORDER
     Route: 048
  5. ASPIRIN. [Concomitant]
     Active Substance: ASPIRIN
     Indication: PROPHYLAXIS
     Route: 048
  6. CARBODOPA LEVY [Concomitant]
     Indication: PARKINSON^S DISEASE
     Dosage: THREE TIMES A DAY
     Route: 048
  7. TUDORZA PRESSAIR [Suspect]
     Active Substance: ACLIDINIUM BROMIDE
     Indication: CHRONIC OBSTRUCTIVE PULMONARY DISEASE
     Route: 055
     Dates: start: 20170203
  8. POTASSIUM CHLORIDE. [Concomitant]
     Active Substance: POTASSIUM CHLORIDE
     Route: 048
  9. LOVASTATIN. [Concomitant]
     Active Substance: LOVASTATIN
     Indication: BLOOD CHOLESTEROL ABNORMAL
     Route: 048
  10. AMITIZA [Concomitant]
     Active Substance: LUBIPROSTONE
     Indication: ABDOMINAL DISCOMFORT
     Route: 048
  11. ZYRTEC [Concomitant]
     Active Substance: CETIRIZINE HYDROCHLORIDE
     Indication: SEASONAL ALLERGY
     Dosage: DAILY
     Route: 048
     Dates: start: 2016
  12. FLONASE [Concomitant]
     Active Substance: FLUTICASONE PROPIONATE
     Indication: MULTIPLE ALLERGIES
     Dosage: 2 SPRAYS IN EACH NOSTRIL
     Route: 045
     Dates: start: 2016

REACTIONS (3)
  - Product quality issue [Unknown]
  - Wrong technique in product usage process [Unknown]
  - Body height decreased [Unknown]
